FAERS Safety Report 7139356-8 (Version None)
Quarter: 2010Q4

REPORT INFORMATION
  Report Type: 
  Country: None (occurrence: None)
  Receive Date: 20101206
  Receipt Date: 20101123
  Transmission Date: 20110411
  Serious: Yes (Hospitalization)
  Sender: FDA-Public Use
  Company Number: CH-MYLANLABS-2010S1021817

PATIENT
  Age: 73 Year
  Sex: Female

DRUGS (9)
  1. LANSOPRAZOLE [Suspect]
     Indication: GASTROOESOPHAGEAL REFLUX DISEASE
  2. OMEPRAZOLE [Suspect]
     Indication: GASTROOESOPHAGEAL REFLUX DISEASE
  3. PHENPROCOUMON [Concomitant]
  4. PRAVASTATIN [Concomitant]
  5. CISAPRIDE [Concomitant]
  6. CALCIUM [Concomitant]
  7. COLECALCIFEROL [Concomitant]
  8. HYDROCHLOROTHIAZIDE [Concomitant]
  9. AMILORIDE HYDROCHLORIDE [Concomitant]

REACTIONS (2)
  - GLOMERULONEPHRITIS ACUTE [None]
  - VASCULITIS [None]
